FAERS Safety Report 25959170 (Version 1)
Quarter: 2025Q4

REPORT INFORMATION
  Report Type: Spontaneous
  Country: EU (occurrence: EU)
  Receive Date: 20251025
  Receipt Date: 20251025
  Transmission Date: 20260118
  Serious: Yes (Hospitalization, Other)
  Sender: AMGEN
  Company Number: EU-AMGEN-DEUSP2025207798

PATIENT
  Age: 54 Year
  Sex: Female

DRUGS (1)
  1. XGEVA [Suspect]
     Active Substance: DENOSUMAB
     Indication: Metastases to bone
     Dosage: UNK
     Route: 065
     Dates: end: 202412

REACTIONS (4)
  - Hypercalcaemia [Unknown]
  - Metastases to bone [Unknown]
  - Renal impairment [Unknown]
  - Urinary tract infection [Not Recovered/Not Resolved]
